FAERS Safety Report 10675154 (Version 4)
Quarter: 2015Q2

REPORT INFORMATION
  Report Type: Report from Study
  Country: FR (occurrence: FR)
  Receive Date: 20141224
  Receipt Date: 20150507
  Transmission Date: 20150821
  Serious: Yes (Hospitalization)
  Sender: FDA-Public Use
  Company Number: FR-GLAXOSMITHKLINE-B0967101A

PATIENT
  Age: 90 Year
  Sex: Female

DRUGS (14)
  1. METHOXY POLYETHYLENE GLYCOL-EPOETIN BETA [Suspect]
     Active Substance: METHOXY POLYETHYLENE GLYCOL-EPOETIN BETA
     Indication: NEPHROGENIC ANAEMIA
     Route: 042
     Dates: start: 20090909
  2. SECTRAL [Concomitant]
     Active Substance: ACEBUTOLOL HYDROCHLORIDE
     Dates: start: 20111014
  3. UVEDOSE [Concomitant]
     Active Substance: CHOLECALCIFEROL
     Dates: start: 20130911
  4. MOTILIUM [Concomitant]
     Active Substance: DOMPERIDONE
     Dates: start: 20120709
  5. ANAFRANIL [Concomitant]
     Active Substance: CLOMIPRAMINE HYDROCHLORIDE
     Dates: start: 20130717
  6. EUPRESSYL [Concomitant]
     Active Substance: URAPIDIL
     Dates: start: 20130909
  7. CALCIDIA [Concomitant]
     Active Substance: CALCIUM POLYCARBOPHIL
     Dates: start: 20110210
  8. INEXIUM [Concomitant]
     Active Substance: ESOMEPRAZOLE
     Dates: start: 20130911
  9. VALACICLOVIR HYDROCHLORIDE [Suspect]
     Active Substance: VALACYCLOVIR HYDROCHLORIDE
     Indication: OPHTHALMIC HERPES SIMPLEX
     Dosage: 1500 MG, QD
     Route: 065
     Dates: start: 20140121
  10. LASILIX [Concomitant]
     Active Substance: FUROSEMIDE
     Dates: start: 20121127
  11. NOVONORM [Concomitant]
     Active Substance: REPAGLINIDE
     Dates: start: 20110923
  12. TAHOR [Concomitant]
     Active Substance: ATORVASTATIN CALCIUM
     Dates: start: 20100831
  13. AMLOR [Concomitant]
     Active Substance: AMLODIPINE BESYLATE
     Dates: start: 201308
  14. TRIATEC [Concomitant]
     Active Substance: RAMIPRIL
     Dates: start: 20110910

REACTIONS (2)
  - Overdose [Recovered/Resolved]
  - Medication error [Unknown]

NARRATIVE: CASE EVENT DATE: 20140122
